FAERS Safety Report 23571016 (Version 1)
Quarter: 2024Q1

REPORT INFORMATION
  Report Type: Spontaneous
  Country: VN (occurrence: VN)
  Receive Date: 20240227
  Receipt Date: 20240227
  Transmission Date: 20240410
  Serious: Yes (Hospitalization)
  Sender: FDA-Public Use
  Company Number: VN-002147023-NVSC2024VN039239

PATIENT
  Age: 11 Year
  Sex: Female

DRUGS (1)
  1. ELTROMBOPAG [Suspect]
     Active Substance: ELTROMBOPAG
     Indication: Immune thrombocytopenia
     Dosage: 25 MG, QD
     Route: 065
     Dates: start: 20230914

REACTIONS (5)
  - Gingival bleeding [Unknown]
  - Heart rate increased [Unknown]
  - Nervousness [Unknown]
  - Palpitations [Unknown]
  - Sinus tachycardia [Unknown]
